FAERS Safety Report 20936993 (Version 2)
Quarter: 2022Q3

REPORT INFORMATION
  Report Type: Other
  Country: DE (occurrence: None)
  Receive Date: 20220609
  Receipt Date: 20220916
  Transmission Date: 20221027
  Serious: Yes (Hospitalization)
  Sender: FDA-Public Use
  Company Number: DE-ROCHE-3109760

PATIENT
  Age: 80 Year
  Sex: Female

DRUGS (16)
  1. TOCILIZUMAB [Suspect]
     Active Substance: TOCILIZUMAB
     Indication: Rheumatoid arthritis
     Route: 058
  2. CEFOTAXIME [Concomitant]
     Active Substance: CEFOTAXIME SODIUM
  3. FOSFOMYCIN [Concomitant]
     Active Substance: FOSFOMYCIN
     Dosage: FOR 7 DAYS
  4. COTRIMOXAZOLE [Concomitant]
     Active Substance: SULFAMETHOXAZOLE\TRIMETHOPRIM
     Dosage: TWO TIMES A DAY FOR 3 WEEKS
  5. METAMIZOLE [Concomitant]
     Active Substance: METAMIZOLE
     Dosage: 40 DROPS
  6. CHOLECALCIFEROL [Concomitant]
     Active Substance: CHOLECALCIFEROL
  7. PREDNISOLONE [Concomitant]
     Active Substance: PREDNISOLONE
  8. FERROUS GLYCINE SULFATE [Concomitant]
     Active Substance: FERROUS GLYCINE SULFATE
  9. FOLIC ACID [Concomitant]
     Active Substance: FOLIC ACID
  10. PANTOZOL [Concomitant]
     Active Substance: PANTOPRAZOLE SODIUM
  11. VALSARTAN [Concomitant]
     Active Substance: VALSARTAN
  12. HYDROCHLOROTHIAZIDE [Concomitant]
     Active Substance: HYDROCHLOROTHIAZIDE
  13. AMITRIPTYLINE [Concomitant]
     Active Substance: AMITRIPTYLINE
  14. PREGABALIN [Concomitant]
     Active Substance: PREGABALIN
  15. CELECOXIB [Concomitant]
     Active Substance: CELECOXIB
     Dosage: AS NEEDED
  16. METHOTREXATE [Concomitant]
     Active Substance: METHOTREXATE
     Dates: start: 202204

REACTIONS (2)
  - Intervertebral discitis [Recovered/Resolved]
  - Spinal instability [Recovered/Resolved]

NARRATIVE: CASE EVENT DATE: 20220101
